FAERS Safety Report 17529447 (Version 1)
Quarter: 2020Q1

REPORT INFORMATION
  Report Type: Spontaneous
  Country: US (occurrence: US)
  Receive Date: 20200311
  Receipt Date: 20200311
  Transmission Date: 20200409
  Serious: No
  Sender: FDA-Public Use
  Company Number: US-SA-2019SA310621

PATIENT
  Age: 28 Year
  Sex: Female

DRUGS (1)
  1. DUPIXENT [Suspect]
     Active Substance: DUPILUMAB
     Dosage: 300 MG, OTHER, 300MG/2ML
     Route: 058
     Dates: start: 201910, end: 201912

REACTIONS (2)
  - Eczema [Unknown]
  - Swelling [Unknown]

NARRATIVE: CASE EVENT DATE: 20200303
